FAERS Safety Report 21931885 (Version 1)
Quarter: 2023Q1

REPORT INFORMATION
  Report Type: Spontaneous
  Country: IQ (occurrence: IQ)
  Receive Date: 20230131
  Receipt Date: 20230131
  Transmission Date: 20230418
  Serious: Yes (Death, Other)
  Sender: FDA-Public Use
  Company Number: IQ-SA-SAC20230131000078

PATIENT
  Age: 6 Month
  Sex: Male
  Weight: 5 kg

DRUGS (1)
  1. CEREZYME [Suspect]
     Active Substance: IMIGLUCERASE
     Indication: Gaucher^s disease type I
     Dosage: UNK

REACTIONS (2)
  - Death [Fatal]
  - Cardiac operation [Unknown]
